FAERS Safety Report 7220710-0 (Version None)
Quarter: 2011Q1

REPORT INFORMATION
  Report Type: 
  Country: None (occurrence: None)
  Receive Date: 20110111
  Receipt Date: 20110104
  Transmission Date: 20110831
  Serious: Yes (Hospitalization)
  Sender: FDA-Public Use
  Company Number: PL-GENENTECH-297194

PATIENT
  Sex: Male

DRUGS (18)
  1. RITUXIMAB [Suspect]
     Dosage: 600 MG, UNK
     Route: 042
     Dates: start: 20100721
  2. CYCLOPHOSPHAMIDE [Suspect]
     Indication: NON-HODGKIN'S LYMPHOMA
     Dosage: 1200 MG, UNK
     Route: 042
     Dates: start: 20090227, end: 20090328
  3. VINCRISTINE [Suspect]
     Indication: NON-HODGKIN'S LYMPHOMA
     Dosage: 2 MG, UNK
     Route: 042
     Dates: start: 20090227
  4. VINCRISTINE [Suspect]
     Dosage: 2 MG, UNK
     Route: 042
     Dates: start: 20100721
  5. PREDNISONE [Suspect]
     Indication: NON-HODGKIN'S LYMPHOMA
     Dosage: 60 MG, UNK
     Route: 048
     Dates: start: 20090227
  6. VINCRISTINE [Suspect]
     Dosage: 2 MG, X5
     Route: 042
     Dates: start: 20090324, end: 20090328
  7. AMLODIPINE [Concomitant]
     Indication: PRODUCT USED FOR UNKNOWN INDICATION
     Dosage: UNK
  8. THEOSPIREX [Concomitant]
     Indication: PRODUCT USED FOR UNKNOWN INDICATION
     Dosage: UNK
     Dates: start: 20100914
  9. CYCLOPHOSPHAMIDE [Suspect]
     Dosage: 1200 MG, X5
     Route: 042
     Dates: start: 20090324, end: 20090328
  10. RITUXIMAB [Suspect]
     Indication: NON-HODGKIN'S LYMPHOMA UNSPECIFIED HISTOLOGY INDOLENT
     Dosage: 600 MG, UNK
     Route: 042
     Dates: start: 20090227
  11. PREDNISONE [Suspect]
     Dosage: 60 MG, X5
     Route: 048
     Dates: start: 20090324, end: 20090328
  12. PREDNISONE [Suspect]
     Dosage: 60 MG, UNK
     Route: 048
     Dates: start: 20100721
  13. SPIRIVA [Concomitant]
     Indication: PRODUCT USED FOR UNKNOWN INDICATION
     Dosage: UNK
     Dates: start: 20100914
  14. CYCLOPHOSPHAMIDE [Suspect]
     Dosage: 1200 MG, UNK
     Route: 042
     Dates: start: 20100721
  15. ATROVENT [Concomitant]
     Indication: PRODUCT USED FOR UNKNOWN INDICATION
     Dosage: UNK
     Dates: start: 20090408, end: 20090427
  16. RITUXIMAB [Suspect]
     Dosage: 600 MG, X5
     Route: 042
     Dates: start: 20090324, end: 20090328
  17. FORADIL [Concomitant]
     Indication: PRODUCT USED FOR UNKNOWN INDICATION
     Dosage: UNK
     Dates: start: 20100914
  18. BUDESONIDE [Concomitant]
     Indication: PRODUCT USED FOR UNKNOWN INDICATION
     Dosage: UNK
     Dates: start: 20090408, end: 20090427

REACTIONS (2)
  - LUNG NEOPLASM MALIGNANT [None]
  - CHRONIC OBSTRUCTIVE PULMONARY DISEASE [None]
